FAERS Safety Report 9931109 (Version 3)
Quarter: 2014Q2

REPORT INFORMATION
  Report Type: Spontaneous
  Country: US (occurrence: US)
  Receive Date: 20140227
  Receipt Date: 20140401
  Transmission Date: 20141212
  Serious: Yes (Other)
  Sender: FDA-Public Use
  Company Number: US-AMGEN-USASP2014013910

PATIENT
  Age: 79 Year
  Sex: Female

DRUGS (1)
  1. EPOGEN [Suspect]
     Indication: RENAL FAILURE CHRONIC
     Dosage: 10000 UNIT, 3 TIMES/WK
     Route: 065
     Dates: start: 2009, end: 20140219

REACTIONS (5)
  - Therapeutic response decreased [Unknown]
  - Aplasia pure red cell [Unknown]
  - Anti-erythropoietin antibody positive [Not Recovered/Not Resolved]
  - Haemoglobin decreased [Not Recovered/Not Resolved]
  - Haematuria [Unknown]
